FAERS Safety Report 15611205 (Version 1)
Quarter: 2018Q4

REPORT INFORMATION
  Report Type: Spontaneous
  Country: ES (occurrence: ES)
  Receive Date: 20181113
  Receipt Date: 20181113
  Transmission Date: 20190205
  Serious: Yes (Hospitalization)
  Sender: FDA-Public Use
  Company Number: ES-ACCORD-091800

PATIENT
  Age: 2 Year
  Sex: Female
  Weight: 11 kg

DRUGS (6)
  1. ASPARAGINE [Interacting]
     Active Substance: ASPARAGINE
     Indication: ACUTE LEUKAEMIA
     Route: 042
     Dates: start: 20170315, end: 20170405
  2. DEXAMETHASONE. [Interacting]
     Active Substance: DEXAMETHASONE
     Indication: ACUTE LEUKAEMIA
     Route: 042
     Dates: start: 20170315, end: 20170405
  3. VINCRISTINE [Interacting]
     Active Substance: VINCRISTINE
     Indication: ACUTE LEUKAEMIA
     Route: 042
     Dates: start: 20170315, end: 20170405
  4. METHOTREXATE (METHOTREXATE SODIUM) [Suspect]
     Active Substance: METHOTREXATE SODIUM
     Indication: ACUTE LEUKAEMIA
     Route: 042
     Dates: start: 20150315, end: 20170403
  5. CYTARABINE/CYTARABINE HYDROCHLORIDE/CYTARABINE OCFOSFATE [Interacting]
     Active Substance: CYTARABINE
     Indication: ACUTE LEUKAEMIA
     Route: 042
     Dates: start: 20170315, end: 20170403
  6. DOXORUBICIN [Interacting]
     Active Substance: DOXORUBICIN
     Indication: ACUTE LEUKAEMIA
     Route: 042
     Dates: start: 20170315, end: 20170405

REACTIONS (3)
  - Hyperglycaemia [Recovered/Resolved]
  - Drug interaction [Unknown]
  - Metapneumovirus infection [Recovered/Resolved]

NARRATIVE: CASE EVENT DATE: 20170322
